FAERS Safety Report 18534264 (Version 4)
Quarter: 2021Q1

REPORT INFORMATION
  Report Type: Spontaneous
  Country: DE (occurrence: DE)
  Receive Date: 20201123
  Receipt Date: 20210115
  Transmission Date: 20210419
  Serious: Yes (Hospitalization)
  Sender: FDA-Public Use
  Company Number: DE-009507513-2011DEU009302

PATIENT
  Age: 40 Year
  Sex: Female
  Weight: 49 kg

DRUGS (8)
  1. OLIMEL E [Suspect]
     Active Substance: AMINO ACIDS\DEXTROSE\ELECTROLYTES NOS\SOYBEAN OIL
     Indication: SHORT-BOWEL SYNDROME
     Dosage: 1.5 LITER
     Route: 051
     Dates: start: 20200708, end: 20201015
  2. CERNEVIT [Suspect]
     Active Substance: VITAMINS
     Indication: PARENTERAL NUTRITION
     Dosage: UNK UNK, QD
     Route: 051
     Dates: start: 20200708
  3. TAVOR EXPIDET [Concomitant]
     Active Substance: LORAZEPAM
     Indication: PRODUCT USED FOR UNKNOWN INDICATION
     Dosage: 1 MILLIGRAM
     Route: 060
     Dates: start: 20200929
  4. MIRTAZAPINE. [Suspect]
     Active Substance: MIRTAZAPINE
     Indication: PRODUCT USED FOR UNKNOWN INDICATION
     Dosage: 45 MILLIGRAM
     Route: 048
     Dates: start: 20200706
  5. OLIMEL E [Suspect]
     Active Substance: AMINO ACIDS\DEXTROSE\ELECTROLYTES NOS\SOYBEAN OIL
     Indication: PARENTERAL NUTRITION
     Dosage: 1.3 LITER, DOSE REDUCED
     Route: 051
     Dates: start: 20201016, end: 20201017
  6. OLIMEL E [Suspect]
     Active Substance: AMINO ACIDS\DEXTROSE\ELECTROLYTES NOS\SOYBEAN OIL
     Indication: PARENTERAL NUTRITION
     Dosage: 1.5 LITER, CHANGED TO OLIMEL 7.6% E OVER 24 HR TO REDUCE FAT INTAKE, OVER 24 HOURS
     Route: 051
     Dates: start: 20201018
  7. ADDEL TRACE [Suspect]
     Active Substance: ELECTROLYTES NOS\MINERALS
     Indication: PARENTERAL NUTRITION
     Dosage: UNK UNK, QD
     Route: 051
     Dates: start: 20200708
  8. PANTOZOL [Suspect]
     Active Substance: PANTOPRAZOLE SODIUM
     Indication: PRODUCT USED FOR UNKNOWN INDICATION
     Dosage: 40 MILLIGRAM
     Route: 042
     Dates: start: 20200706

REACTIONS (5)
  - Blood bilirubin increased [Not Recovered/Not Resolved]
  - Lipase increased [Recovered/Resolved]
  - Pain [Not Recovered/Not Resolved]
  - Jaundice [Not Recovered/Not Resolved]
  - Blood triglycerides increased [Recovering/Resolving]

NARRATIVE: CASE EVENT DATE: 20200820
